FAERS Safety Report 25962817 (Version 1)
Quarter: 2025Q4

REPORT INFORMATION
  Report Type: Spontaneous
  Country: EU (occurrence: EU)
  Receive Date: 20251027
  Receipt Date: 20251027
  Transmission Date: 20260118
  Serious: Yes (Hospitalization, Other)
  Sender: SANOFI AVENTIS
  Company Number: EU-SA-2022SA513362

PATIENT
  Age: 68 Year
  Sex: Male
  Weight: 92 kg

DRUGS (7)
  1. ACETAMINOPHEN [Suspect]
     Active Substance: ACETAMINOPHEN
     Indication: Arthralgia
     Dosage: 4 G, QD
     Route: 065
     Dates: start: 20221205, end: 20221207
  2. LOVENOX [Suspect]
     Active Substance: ENOXAPARIN SODIUM
     Indication: Acute coronary syndrome
     Dosage: 18000 IU, QD
     Route: 058
     Dates: start: 20221129, end: 20221204
  3. TIAPRIDE HYDROCHLORIDE [Suspect]
     Active Substance: TIAPRIDE HYDROCHLORIDE
     Indication: Agitation
     Dosage: 10 MG
     Route: 048
     Dates: start: 20221203, end: 20221204
  4. GENTAMICIN [Suspect]
     Active Substance: GENTAMICIN
     Indication: Endocarditis
     Dosage: 270 MG, QD
     Route: 042
     Dates: start: 20221129, end: 20221207
  5. ATORVASTATIN CALCIUM TRIHYDRATE [Suspect]
     Active Substance: ATORVASTATIN CALCIUM TRIHYDRATE
     Indication: Acute coronary syndrome
     Dosage: 80 MG, QD
     Route: 048
     Dates: start: 20221129, end: 20221204
  6. AMOXICILLIN\CLAVULANATE POTASSIUM [Suspect]
     Active Substance: AMOXICILLIN\CLAVULANATE POTASSIUM
     Indication: Endocarditis
     Dosage: 6 G, QD
     Route: 042
     Dates: start: 20221129, end: 20221207
  7. AMOXICILLIN [Suspect]
     Active Substance: AMOXICILLIN
     Indication: Endocarditis
     Dosage: 6 G, QD
     Route: 042
     Dates: start: 20221129, end: 20221207

REACTIONS (1)
  - Hepatitis acute [Recovering/Resolving]

NARRATIVE: CASE EVENT DATE: 20221206
